FAERS Safety Report 10593500 (Version 2)
Quarter: 2014Q4

REPORT INFORMATION
  Report Type: Report from Study
  Country: US (occurrence: US)
  Receive Date: 20141119
  Receipt Date: 20141119
  Transmission Date: 20150529
  Serious: Yes (Hospitalization)
  Sender: FDA-Public Use
  Company Number: US-GILEAD-2014-0119392

PATIENT
  Age: 60 Year
  Sex: Female

DRUGS (6)
  1. B12                                /00056201/ [Concomitant]
  2. IDELALISIB [Suspect]
     Active Substance: IDELALISIB
     Indication: SARCOMA
  3. CYMBALTA [Concomitant]
     Active Substance: DULOXETINE HYDROCHLORIDE
  4. VITAMIN D                          /00107901/ [Concomitant]
     Active Substance: ERGOCALCIFEROL
  5. IDELALISIB [Suspect]
     Active Substance: IDELALISIB
     Indication: LYMPHOMA
     Dosage: 300 MG, UNK
     Route: 048
     Dates: start: 20141007, end: 20141114
  6. SYNTHROID [Concomitant]
     Active Substance: LEVOTHYROXINE SODIUM

REACTIONS (2)
  - Pain [Unknown]
  - Splenomegaly [Unknown]
